FAERS Safety Report 9624849 (Version 1)
Quarter: 2013Q4

REPORT INFORMATION
  Report Type: Spontaneous
  Country: US (occurrence: US)
  Receive Date: 20131016
  Receipt Date: 20131016
  Transmission Date: 20140711
  Serious: Yes (Other)
  Sender: FDA-Public Use
  Company Number: US-AMGEN-USASP2013071135

PATIENT
  Age: 82 Year
  Sex: Female

DRUGS (11)
  1. PROLIA [Suspect]
     Indication: OSTEOPOROSIS
     Dosage: UNK
     Route: 065
     Dates: start: 2011
  2. AMLODIPINE [Concomitant]
  3. POTASSIUM [Concomitant]
  4. FUROSEMIDE [Concomitant]
  5. METOPROLOL [Concomitant]
     Dosage: UNK UNK, BID
  6. SIMVASTATIN [Concomitant]
  7. FENTANYL [Concomitant]
     Dosage: UNK UNK, Q2WK
     Route: 062
  8. FISH OIL [Concomitant]
     Dosage: UNK UNK, BID
  9. MULTIVITAMIN                       /00097801/ [Concomitant]
  10. CALTRATE + VITAMIN D [Concomitant]
  11. VITAMIN D                          /00107901/ [Concomitant]

REACTIONS (4)
  - Deep vein thrombosis [Unknown]
  - Joint swelling [Unknown]
  - Local swelling [Unknown]
  - Erythema [Unknown]
